FAERS Safety Report 5253285-6 (Version None)
Quarter: 2007Q1

REPORT INFORMATION
  Report Type: 
  Country: None (occurrence: None)
  Receive Date: 20070301
  Receipt Date: 20070228
  Transmission Date: 20070707
  Serious: Yes (Death)
  Sender: FDA-Public Use
  Company Number: US-BRISTOL-MYERS SQUIBB COMPANY-13654553

PATIENT
  Age: 56 Year
  Sex: Male

DRUGS (5)
  1. BUSPAR [Suspect]
     Indication: ANXIETY
     Route: 048
     Dates: start: 20051025
  2. CARDURA [Concomitant]
  3. DONNATAL [Concomitant]
  4. NORVASC [Concomitant]
  5. AVAPRO [Concomitant]

REACTIONS (1)
  - DEATH [None]
